FAERS Safety Report 4869782-9 (Version None)
Quarter: 2005Q4

REPORT INFORMATION
  Report Type: 
  Country: None (occurrence: None)
  Receive Date: 20051223
  Receipt Date: 20051219
  Transmission Date: 20060501
  Serious: Yes (Disabling, Other)
  Sender: FDA-Public Use
  Company Number: 200513029BWH

PATIENT
  Sex: Female

DRUGS (2)
  1. CIPRO [Suspect]
     Indication: INFECTION
     Dosage: BID, ORAL
     Route: 048
  2. CIPRO [Suspect]
     Indication: INFECTION PROPHYLAXIS
     Dosage: BID, ORAL
     Route: 048

REACTIONS (2)
  - BONE PAIN [None]
  - PAIN IN EXTREMITY [None]
